FAERS Safety Report 15705962 (Version 1)
Quarter: 2018Q4

REPORT INFORMATION
  Report Type: Spontaneous
  Country: FR (occurrence: FR)
  Receive Date: 20181210
  Receipt Date: 20181210
  Transmission Date: 20190205
  Serious: Yes (Hospitalization)
  Sender: FDA-Public Use
  Company Number: FR-TEVA-2018-FR-984197

PATIENT
  Age: 31 Year
  Sex: Male

DRUGS (4)
  1. LOXAPAC (LOXAPINE) [Suspect]
     Active Substance: LOXAPINE
     Indication: PSYCHOTIC DISORDER
     Dosage: 150 MILLIGRAM DAILY;
     Route: 030
     Dates: start: 201710
  2. BUPRENORPHINE. [Suspect]
     Active Substance: BUPRENORPHINE
     Indication: PRODUCT SUBSTITUTION
     Dosage: 1.2 MILLIGRAM DAILY;
     Route: 048
     Dates: start: 2016
  3. XEPLION 100 MG, SUSPENSION INJECTABLE ? LIB?RATION PROLONG?E [Suspect]
     Active Substance: PALIPERIDONE PALMITATE
     Indication: PSYCHOTIC DISORDER
     Route: 030
     Dates: start: 201712
  4. TERCIAN 100 MG, COMPRIM? PELLICUL? S?CABLE [Suspect]
     Active Substance: CYAMEMAZINE
     Indication: PSYCHOTIC DISORDER
     Dosage: 600 MILLIGRAM DAILY;
     Route: 048
     Dates: start: 201710

REACTIONS (2)
  - Intestinal obstruction [Not Recovered/Not Resolved]
  - Constipation [Not Recovered/Not Resolved]

NARRATIVE: CASE EVENT DATE: 201806
